FAERS Safety Report 25134022 (Version 1)
Quarter: 2025Q1

REPORT INFORMATION
  Report Type: Report from Study
  Country: US (occurrence: US)
  Receive Date: 20250328
  Receipt Date: 20250328
  Transmission Date: 20250409
  Serious: Yes (Other)
  Sender: UCB
  Company Number: US-UCBSA-2025017766

PATIENT
  Sex: Male

DRUGS (1)
  1. ROTIGOTINE [Suspect]
     Active Substance: ROTIGOTINE
     Indication: Product used for unknown indication
     Route: 062

REACTIONS (5)
  - Loss of consciousness [Unknown]
  - Tremor [Unknown]
  - Restless legs syndrome [Unknown]
  - Therapy interrupted [Unknown]
  - Insurance issue [Unknown]
